FAERS Safety Report 21835637 (Version 1)
Quarter: 2023Q1

REPORT INFORMATION
  Report Type: Spontaneous
  Country: US (occurrence: None)
  Receive Date: 20230109
  Receipt Date: 20230109
  Transmission Date: 20230417
  Serious: No
  Sender: FDA-Public Use
  Company Number: US-ROCHE-3257914

PATIENT
  Age: 56 Year
  Sex: Female

DRUGS (1)
  1. OCREVUS [Suspect]
     Active Substance: OCRELIZUMAB
     Indication: Multiple sclerosis
     Dosage: NEXT DOSE IS SCHEDULED FOR 1/6/22. LAST DOSE WAS 6 MONTHS AND 1 WEEK AGO FROM TODAY ONGOING: YES
     Route: 065

REACTIONS (4)
  - COVID-19 [Unknown]
  - Nasal disorder [Unknown]
  - Cough [Unknown]
  - Headache [Unknown]
